FAERS Safety Report 6880798-3 (Version None)
Quarter: 2010Q3

REPORT INFORMATION
  Report Type: 
  Country: None (occurrence: None)
  Receive Date: 20100728
  Receipt Date: 20100722
  Transmission Date: 20110219
  Serious: Yes (Death, Other)
  Sender: FDA-Public Use
  Company Number: IT-ELI_LILLY_AND_COMPANY-IT201007006063

PATIENT
  Age: 68 Year
  Sex: Male

DRUGS (4)
  1. PEMETREXED [Suspect]
     Indication: PLEURAL MESOTHELIOMA MALIGNANT
     Dosage: 875 MG, UNK
     Route: 042
     Dates: start: 20050501
  2. PEMETREXED [Suspect]
     Dosage: 875 MG, UNK
     Route: 042
     Dates: start: 20060201
  3. CISPLATIN [Concomitant]
     Indication: PLEURAL MESOTHELIOMA MALIGNANT
     Dosage: 130 MG, UNK
     Route: 042
     Dates: start: 20050501
  4. CISPLATIN [Concomitant]
     Dosage: 130 MG, UNK
     Route: 042
     Dates: start: 20060201

REACTIONS (5)
  - BRONCHIAL DISORDER [None]
  - LEUKOPENIA [None]
  - PLEURAL EFFUSION [None]
  - PYREXIA [None]
  - SEPSIS [None]
